FAERS Safety Report 21611269 (Version 2)
Quarter: 2023Q1

REPORT INFORMATION
  Report Type: Spontaneous
  Country: US (occurrence: US)
  Receive Date: 20221117
  Receipt Date: 20230113
  Transmission Date: 20230418
  Serious: No
  Sender: FDA-Public Use
  Company Number: US-SA-SAC20221115000959

PATIENT
  Age: 9 Year
  Sex: Female
  Weight: 13 kg

DRUGS (1)
  1. CAPRELSA [Suspect]
     Active Substance: VANDETANIB
     Indication: Thyroid cancer
     Dosage: 100MG IN 2 OUNCES OF WATER FOR 10 MINUTES, THEN DRAW UP 42ML AND SWALLOW IMMEDIATELY ONCE DAILY
     Route: 048
     Dates: start: 202211

REACTIONS (1)
  - Off label use [Unknown]

NARRATIVE: CASE EVENT DATE: 20221101
